FAERS Safety Report 25611126 (Version 4)
Quarter: 2025Q4

REPORT INFORMATION
  Report Type: Spontaneous
  Country: US (occurrence: US)
  Receive Date: 20250728
  Receipt Date: 20251014
  Transmission Date: 20260118
  Serious: No
  Sender: PFIZER
  Company Number: US-PFIZER INC-202500148796

PATIENT
  Age: 34 Year
  Sex: Male

DRUGS (1)
  1. HYMPAVZI [Suspect]
     Active Substance: MARSTACIMAB-HNCQ
     Indication: Factor IX deficiency
     Dosage: 300 MG (2 150MG PENS EACH, BY INJECTION UNKNOWN SITE)
     Dates: start: 20250717

REACTIONS (1)
  - Injection site pain [Recovered/Resolved]

NARRATIVE: CASE EVENT DATE: 20250717
